FAERS Safety Report 21969556 (Version 1)
Quarter: 2023Q1

REPORT INFORMATION
  Report Type: Spontaneous
  Country: CN (occurrence: CN)
  Receive Date: 20230208
  Receipt Date: 20230208
  Transmission Date: 20230418
  Serious: Yes (Hospitalization, Other)
  Sender: FDA-Public Use
  Company Number: CN-009507513-2302CHN001587

PATIENT
  Age: 48 Year
  Sex: Female
  Weight: 55 kg

DRUGS (3)
  1. KEYTRUDA [Suspect]
     Active Substance: PEMBROLIZUMAB
     Dosage: 100 MG, ONCE A DAY
     Route: 041
     Dates: start: 20221112, end: 20221212
  2. PACLITAXEL [Suspect]
     Active Substance: PACLITAXEL
     Dosage: 0.3G D1, ONCE
     Route: 041
     Dates: start: 20221112, end: 20221112
  3. CARBOPLATIN [Suspect]
     Active Substance: CARBOPLATIN
     Dosage: 400 MG D1, ONCE
     Route: 041
     Dates: start: 20221112, end: 20221112

REACTIONS (3)
  - Myelosuppression [Recovering/Resolving]
  - Underdose [Unknown]
  - Product use issue [Unknown]

NARRATIVE: CASE EVENT DATE: 20221112
